FAERS Safety Report 6719801-X (Version None)
Quarter: 2010Q2

REPORT INFORMATION
  Report Type: 
  Country: None (occurrence: None)
  Receive Date: 20100511
  Receipt Date: 20100428
  Transmission Date: 20101027
  Serious: Yes (Other)
  Sender: FDA-Public Use
  Company Number: PHHY2010MX27425

PATIENT
  Sex: Female

DRUGS (4)
  1. DIOVAN HCT [Suspect]
     Indication: HYPERTENSION
     Dosage: 1 TABLET (160/12.5 MG) PER DAY
     Route: 048
     Dates: start: 20081124
  2. AMARYL [Concomitant]
     Indication: DIABETES MELLITUS
     Dosage: 1 TABLET PER DAY
     Dates: start: 20100101
  3. DIABION [Concomitant]
     Indication: DIABETES MELLITUS
     Dosage: 1 TABLET PER DAY
     Dates: start: 20080101
  4. CLINDAMYCIN HCL [Concomitant]
     Indication: INFECTION
     Dosage: 3 TABLETS PER DAY
     Dates: start: 20100401

REACTIONS (4)
  - FALL [None]
  - PAIN [None]
  - SKELETAL INJURY [None]
  - SKIN INJURY [None]
